FAERS Safety Report 12642523 (Version 2)
Quarter: 2016Q3

REPORT INFORMATION
  Report Type: Report from Study
  Country: US (occurrence: US)
  Receive Date: 20160810
  Receipt Date: 20160818
  Transmission Date: 20161109
  Serious: Yes (Hospitalization)
  Sender: FDA-Public Use
  Company Number: US-ALEXION-A201605722

PATIENT
  Sex: Female

DRUGS (2)
  1. SOLIRIS [Suspect]
     Active Substance: ECULIZUMAB
     Indication: HAEMOLYTIC URAEMIC SYNDROME
     Dosage: UNK, QW
     Route: 042
  2. SOLIRIS [Suspect]
     Active Substance: ECULIZUMAB
     Dosage: 1200 MG, Q10D
     Route: 042

REACTIONS (5)
  - Feeling abnormal [Recovering/Resolving]
  - Inappropriate schedule of drug administration [Unknown]
  - Platelet count decreased [Recovering/Resolving]
  - Blood creatinine increased [Recovering/Resolving]
  - Vitamin D decreased [Unknown]
